FAERS Safety Report 8431961-1 (Version None)
Quarter: 2012Q2

REPORT INFORMATION
  Report Type: 
  Country: None (occurrence: None)
  Receive Date: 20120613
  Receipt Date: 20110418
  Transmission Date: 20120825
  Serious: No
  Sender: FDA-Public Use
  Company Number: US-ASTRAZENECA-2011SE22632

PATIENT
  Age: 19 Year
  Sex: Male

DRUGS (6)
  1. COLACE [Concomitant]
  2. RISPERDAL [Concomitant]
  3. ZINC SULFATE [Concomitant]
  4. RHINOCORT [Suspect]
     Dosage: 32 MCG TWO TO FOUR PUFFS DAILY
     Route: 045
     Dates: start: 20090929
  5. CLONIDINE [Concomitant]
  6. SINGULAIR [Concomitant]

REACTIONS (5)
  - NASAL SEPTUM PERFORATION [None]
  - NASAL INFLAMMATION [None]
  - COUGH [None]
  - WOUND DEHISCENCE [None]
  - SINUSITIS [None]
